FAERS Safety Report 25232433 (Version 2)
Quarter: 2025Q2

REPORT INFORMATION
  Report Type: Report from Study
  Country: US (occurrence: US)
  Receive Date: 20250423
  Receipt Date: 20250430
  Transmission Date: 20250716
  Serious: Yes (Other)
  Sender: ABBVIE
  Company Number: US-ABBVIE-6238396

PATIENT
  Age: 58 Year
  Sex: Female

DRUGS (2)
  1. RINVOQ [Suspect]
     Active Substance: UPADACITINIB
     Indication: Rheumatoid arthritis
     Route: 048
     Dates: start: 20180101
  2. Dexolan [Concomitant]
     Indication: Gastrooesophageal reflux disease
     Dates: start: 2010

REACTIONS (1)
  - Neck surgery [Not Recovered/Not Resolved]

NARRATIVE: CASE EVENT DATE: 20240501
